FAERS Safety Report 12502924 (Version 7)
Quarter: 2017Q1

REPORT INFORMATION
  Report Type: Spontaneous
  Country: US (occurrence: US)
  Receive Date: 20160628
  Receipt Date: 20170315
  Transmission Date: 20170428
  Serious: Yes (Other)
  Sender: FDA-Public Use
  Company Number: PHHY2016US087384

PATIENT
  Sex: Female
  Weight: 73 kg

DRUGS (1)
  1. ZOFRAN [Suspect]
     Active Substance: ONDANSETRON HYDROCHLORIDE
     Indication: VOMITING IN PREGNANCY
     Dosage: QD
     Route: 048
     Dates: start: 20050830, end: 20051103

REACTIONS (11)
  - Gestational diabetes [Unknown]
  - Abdominal pain lower [Recovering/Resolving]
  - Maternal exposure during pregnancy [Unknown]
  - Migraine [Recovering/Resolving]
  - Premature delivery [Unknown]
  - Dizziness [Recovering/Resolving]
  - Product use issue [Unknown]
  - Depression [Unknown]
  - Uterine contractions during pregnancy [Unknown]
  - Orthostatic hypotension [Unknown]
  - Dysmenorrhoea [Unknown]
